FAERS Safety Report 23684536 (Version 1)
Quarter: 2024Q1

REPORT INFORMATION
  Report Type: Report from Study
  Country: CN (occurrence: CN)
  Receive Date: 20240328
  Receipt Date: 20240328
  Transmission Date: 20240410
  Serious: No
  Sender: FDA-Public Use
  Company Number: CN-ROCHE-3528080

PATIENT
  Sex: Female

DRUGS (3)
  1. GAVRETO [Suspect]
     Active Substance: PRALSETINIB
     Indication: Non-small cell lung cancer
     Route: 048
     Dates: start: 202301
  2. GAVRETO [Suspect]
     Active Substance: PRALSETINIB
     Route: 048
  3. OSIMERTINIB [Suspect]
     Active Substance: OSIMERTINIB
     Indication: Non-small cell lung cancer
     Dosage: ONE TABLET PER DAY WITH UNCLEAR SPECIFICATIONS
     Route: 048
     Dates: start: 2021

REACTIONS (3)
  - Abscess [Not Recovered/Not Resolved]
  - Discomfort [Unknown]
  - Asthenia [Not Recovered/Not Resolved]
